FAERS Safety Report 6300366-1 (Version None)
Quarter: 2009Q3

REPORT INFORMATION
  Report Type: 
  Country: None (occurrence: None)
  Receive Date: 20090806
  Receipt Date: 20080814
  Transmission Date: 20100115
  Serious: No
  Sender: FDA-Public Use
  Company Number: US-ABBOTT-08P-163-0470787-00

PATIENT
  Sex: Female
  Weight: 122.58 kg

DRUGS (6)
  1. DEPAKOTE ER [Suspect]
     Indication: CONVULSION
     Route: 048
     Dates: start: 20080728
  2. DEPAKOTE ER [Suspect]
     Route: 048
     Dates: start: 20080721, end: 20080727
  3. BENICAR HCT [Concomitant]
     Indication: HYPERTENSION
     Dosage: 40/12.5 MILLIGRAMS
     Route: 048
     Dates: start: 20060101
  4. ROSUVASTATIN CALCIUM [Concomitant]
     Indication: BLOOD CHOLESTEROL INCREASED
     Route: 048
     Dates: start: 20060101
  5. ESTROGEN HORMONE PILL [Concomitant]
     Indication: HORMONE REPLACEMENT THERAPY
     Route: 048
     Dates: start: 19870101
  6. GLIPIZIDE [Concomitant]
     Indication: DIABETES MELLITUS
     Route: 048
     Dates: start: 20080101

REACTIONS (3)
  - FALL [None]
  - JOINT INJURY [None]
  - WEIGHT INCREASED [None]
